FAERS Safety Report 8770315 (Version 3)
Quarter: 2012Q4

REPORT INFORMATION
  Report Type: Report from Study
  Country: US (occurrence: US)
  Receive Date: 20120906
  Receipt Date: 20121206
  Transmission Date: 20130627
  Serious: Yes (Hospitalization)
  Sender: FDA-Public Use
  Company Number: US-PFIZER INC-2012217613

PATIENT
  Age: 67 Year
  Sex: Female

DRUGS (3)
  1. RAPAMUNE [Suspect]
     Dosage: UNK
     Dates: start: 20120801
  2. BELATACEPT [Suspect]
     Indication: RENAL TRANSPLANT
     Dosage: UNK
     Route: 042
     Dates: start: 20070117
  3. AZATHIOPRINE [Concomitant]
     Dosage: UNK
     Dates: start: 20120417

REACTIONS (2)
  - Diarrhoea [Recovered/Resolved]
  - Dehydration [Recovered/Resolved]
